FAERS Safety Report 9215389 (Version 4)
Quarter: 2016Q4

REPORT INFORMATION
  Report Type: Spontaneous
  Country: US (occurrence: US)
  Receive Date: 20130405
  Receipt Date: 20161012
  Transmission Date: 20170207
  Serious: No
  Sender: FDA-Public Use
  Company Number: US-PFIZER INC-2013106636

PATIENT
  Age: 90 Year
  Sex: Female

DRUGS (18)
  1. TENORMIN [Concomitant]
     Active Substance: ATENOLOL
     Dosage: 50 MG, DAILY
     Route: 048
  2. CLARITIN [Concomitant]
     Active Substance: LORATADINE
     Dosage: 10 MG, UNK
     Route: 048
  3. LOMOTIL [Concomitant]
     Active Substance: ATROPINE SULFATE\DIPHENOXYLATE HYDROCHLORIDE
     Indication: DIARRHOEA
     Dosage: 2 DF, AS NEEDED (2 TABLET BY 4 (FOUR) TIMES A DAY) (DIPHENOXYLATE: 2.5MG, ATROPINE: 0.025 MG)
     Route: 048
  4. ACULAR [Concomitant]
     Active Substance: KETOROLAC TROMETHAMINE
     Dosage: 0.5 %, UNK
     Route: 047
  5. MELATONIN [Concomitant]
     Active Substance: MELATONIN
     Dosage: 0.5 MG, AS NEEDED (BED TIME)
  6. PRED FORTE [Concomitant]
     Active Substance: PREDNISOLONE ACETATE
     Dosage: 1 %, UNK
     Route: 047
  7. CELEXA [Concomitant]
     Active Substance: CITALOPRAM HYDROBROMIDE
     Dosage: 20 MG, DAILY
     Route: 048
  8. ZESTRIL [Concomitant]
     Active Substance: LISINOPRIL
     Dosage: 40 MG, DAILY
     Route: 048
  9. IMODIUM [Concomitant]
     Active Substance: LOPERAMIDE HYDROCHLORIDE
     Dosage: 2 MG, UNK
  10. OCUFLOX [Concomitant]
     Active Substance: OFLOXACIN
     Dosage: 0.3 %, UNK
     Route: 047
  11. APRESOLINE HYDROCHLORIDE [Concomitant]
     Active Substance: HYDRALAZINE HYDROCHLORIDE
     Dosage: 10 MG, 4X/DAY
     Route: 048
  12. HYDRODIURIL [Concomitant]
     Active Substance: HYDROCHLOROTHIAZIDE
     Dosage: 50 MG, DAILY
     Route: 048
  13. PRINIVIL [Concomitant]
     Active Substance: LISINOPRIL
     Dosage: 40 MG, DAILY
     Route: 048
  14. BACTROBAN [Concomitant]
     Active Substance: MUPIROCIN\MUPIROCIN CALCIUM
     Dosage: 2 %, UNK
  15. LYRICA [Suspect]
     Active Substance: PREGABALIN
     Dosage: 50 MG, 2X/DAY
     Route: 048
     Dates: start: 20161005
  16. COMBIGAN [Concomitant]
     Active Substance: BRIMONIDINE TARTRATE\TIMOLOL MALEATE
     Dosage: 1 GTT, 2X/DAY (BRIMONIDINE TARTRATE: 0.2 %, TIMOLOL MALEATE 0.5 %)
     Route: 047
  17. RESTORIL [Concomitant]
     Active Substance: TEMAZEPAM
     Indication: SOMNOLENCE
     Dosage: 15 MG, AS NEEDED (BEDTIME )
     Route: 048
  18. TIMOPTIC [Concomitant]
     Active Substance: TIMOLOL MALEATE
     Dosage: 0.5 %, UNK
     Route: 047

REACTIONS (1)
  - Diarrhoea [Unknown]
